FAERS Safety Report 5806330-0 (Version None)
Quarter: 2008Q3

REPORT INFORMATION
  Report Type: 
  Country: None (occurrence: None)
  Receive Date: 20080708
  Receipt Date: 20080630
  Transmission Date: 20090109
  Serious: Yes (Other)
  Sender: FDA-Public Use
  Company Number: 2008017251

PATIENT
  Age: 66 Year
  Sex: Male
  Weight: 113.3993 kg

DRUGS (1)
  1. LISTERINE TOOTH DEFENSE (SODIUM FLUORIDE) [Suspect]
     Indication: DENTAL CARE
     Dosage: 1 TEASPOON TWO TIMES PER DAY (2 IN 1 D), ORAL
     Route: 048
     Dates: start: 20080628, end: 20080629

REACTIONS (3)
  - APPLICATION SITE BURN [None]
  - SENSITIVITY OF TEETH [None]
  - TONGUE DISORDER [None]
